FAERS Safety Report 9695427 (Version 1)
Quarter: 2013Q4

REPORT INFORMATION
  Report Type: Spontaneous
  Country: US (occurrence: None)
  Receive Date: 20131118
  Receipt Date: 20131118
  Transmission Date: 20140711
  Serious: Yes (Life-Threatening, Hospitalization)
  Sender: FDA-Public Use
  Company Number: None

PATIENT
  Age: 37 Year
  Sex: Female
  Weight: 58.06 kg

DRUGS (1)
  1. VENOFER [Suspect]
     Indication: IRON DEFICIENCY
     Dates: start: 20131115

REACTIONS (13)
  - Hypotension [None]
  - Bradycardia [None]
  - Syncope [None]
  - Heart rate decreased [None]
  - Urticaria [None]
  - Angioedema [None]
  - Arthralgia [None]
  - Pelvic pain [None]
  - Oral mucosal blistering [None]
  - Paraesthesia [None]
  - Paraesthesia [None]
  - Oedema mouth [None]
  - Burning sensation [None]
